FAERS Safety Report 4523326-X (Version None)
Quarter: 2004Q4

REPORT INFORMATION
  Report Type: 
  Country: None (occurrence: None)
  Receive Date: 20041208
  Receipt Date: 20041123
  Transmission Date: 20050328
  Serious: Yes (Other)
  Sender: FDA-Public Use
  Company Number: MC200400828

PATIENT
  Age: 71 Year
  Sex: Male
  Weight: 70.8 kg

DRUGS (8)
  1. ANGIOMAX [Suspect]
     Dosage: SEE IMAGE
     Route: 042
     Dates: start: 20041117, end: 20041117
  2. ANGIOMAX [Suspect]
     Dosage: SEE IMAGE
     Route: 042
     Dates: start: 20041117, end: 20041117
  3. ATROPINE [Concomitant]
  4. DOPAMINE (DOPAMINE) [Concomitant]
  5. EPINEPHRINE [Concomitant]
  6. NUBAN ^DUPONT PHARMA^ (NALBUPHINE HYDROCHLORIDE) [Concomitant]
  7. ZOFRAN [Concomitant]
  8. VISIPAQUE [Concomitant]

REACTIONS (9)
  - DRUG SCREEN POSITIVE [None]
  - HAEMATOMA [None]
  - HAEMOPTYSIS [None]
  - HYPOTENSION [None]
  - NAUSEA [None]
  - PROCEDURAL COMPLICATION [None]
  - THROMBOSIS [None]
  - VENTRICULAR TACHYCARDIA [None]
  - VOMITING [None]
